FAERS Safety Report 22134925 (Version 1)
Quarter: 2023Q1

REPORT INFORMATION
  Report Type: Spontaneous
  Country: ES (occurrence: ES)
  Receive Date: 20230324
  Receipt Date: 20230324
  Transmission Date: 20230418
  Serious: Yes (Other)
  Sender: FDA-Public Use
  Company Number: None

PATIENT
  Age: 64 Year
  Sex: Female

DRUGS (12)
  1. ADALIMUMAB [Suspect]
     Active Substance: ADALIMUMAB
     Indication: Lupus-like syndrome
     Dosage: UNKNOWN
     Route: 065
     Dates: start: 20220501, end: 20221201
  2. INDACATEROL [Concomitant]
     Active Substance: INDACATEROL
     Indication: Bronchitis chronic
     Dosage: 150.0 MCG C/24 H, BREEZHALER 150 MICROGRAMS INHALATION POWDER (HARD CAPSULE), 1 INHALER PLUS 30 CAPS
     Route: 065
     Dates: start: 20150424
  3. ADVENTAN [Concomitant]
     Indication: Dermatitis
     Dosage: 1.0 APLIC C/12 H, 1 MG/G CREAM, 1 TUBE OF 60 G
     Route: 061
     Dates: start: 20210423
  4. LEVOTHYROXINE SODIUM [Concomitant]
     Active Substance: LEVOTHYROXINE SODIUM
     Indication: Hypothyroidism
     Dosage: 150.0 MCG A-DE, 150 MICROGRAM TABLETS, 100 TABLETS
     Route: 048
     Dates: start: 20201006
  5. CHOLECALCIFEROL [Concomitant]
     Active Substance: CHOLECALCIFEROL
     Indication: Vitamin D deficiency
     Dosage: 25000.0 UI C/14 DAYS, STRENGTH: 25,000 IU/2.5 ML ORAL SOLUTION, 4 VIALS OF 2.5 ML
     Route: 048
     Dates: start: 20211231
  6. OMEPRAZOLE [Concomitant]
     Active Substance: OMEPRAZOLE
     Indication: Gastritis
     Dosage: 20.0 MG A-DE, EFG 20 MG GASTRORESISTANT HARD CAPSULES, 56 CAPSULES
     Route: 048
     Dates: start: 20190914
  7. FOLIC ACID [Concomitant]
     Active Substance: FOLIC ACID
     Indication: Systemic lupus erythematosus
     Dosage: 5.0 MG C/7 DAYS,5 MG TABLETS, 28 TABLETS
     Route: 048
     Dates: start: 20211124
  8. ESCITALOPRAM OXALATE [Concomitant]
     Active Substance: ESCITALOPRAM OXALATE
     Indication: Anxiety disorder
     Dosage: 5.0 MG DE,10 MG FILM-COATED TABLETS EFG, 56 TABLETS
     Route: 048
     Dates: start: 20211221
  9. HYDROXYCHLOROQUINE SULFATE [Concomitant]
     Active Substance: HYDROXYCHLOROQUINE SULFATE
     Indication: Dermatitis
     Dosage: 200.0 MG C/24 H, 200 MG COATED TABLETS, 30 TABLETS
     Route: 048
     Dates: start: 20220803
  10. STELARA [Concomitant]
     Active Substance: USTEKINUMAB
     Indication: Crohn^s disease
     Dosage: 90 MG SOLUTION FOR INJECTION IN PRE-FILLED SYRINGE, 1 PRE-FILLED SYRINGE
     Route: 058
     Dates: start: 20220415
  11. FERROUS SULFATE [Concomitant]
     Active Substance: FERROUS SULFATE
     Indication: Iron deficiency anaemia
     Dosage: 256.3 MG C/24 H AM, 80 MG COATED TABLETS, 30 TABLETS
     Route: 048
     Dates: start: 20130605
  12. CYANOCOBALAMIN [Concomitant]
     Active Substance: CYANOCOBALAMIN
     Indication: Hypothyroidism
     Dosage: 1.0 MG C/30 DAYS, 1,000 MICROGRAMS SOLUTION FOR INJECTION, 5 AMPOULES OF 2 ML
     Route: 030
     Dates: start: 20121211

REACTIONS (2)
  - Dermatitis [Recovering/Resolving]
  - Product use in unapproved indication [Unknown]

NARRATIVE: CASE EVENT DATE: 20220901
